FAERS Safety Report 5761310-9 (Version None)
Quarter: 2008Q2

REPORT INFORMATION
  Report Type: 
  Country: None (occurrence: None)
  Receive Date: 20080606
  Receipt Date: 20080527
  Transmission Date: 20081010
  Serious: Yes (Other)
  Sender: FDA-Public Use
  Company Number: NL-MERCK-0805NLD00015

PATIENT
  Age: 71 Year
  Sex: Male

DRUGS (5)
  1. HYZAAR [Suspect]
     Indication: HYPERTENSION
     Route: 048
     Dates: start: 20070710, end: 20071010
  2. HYZAAR [Suspect]
     Route: 048
     Dates: start: 20071220, end: 20080220
  3. OMNIC [Concomitant]
     Route: 048
     Dates: start: 20070101
  4. BETOPTIC [Concomitant]
     Route: 065
     Dates: start: 20070101
  5. AMLODIPINE BESYLATE [Concomitant]
     Route: 048

REACTIONS (6)
  - ALANINE AMINOTRANSFERASE INCREASED [None]
  - ASPARTATE AMINOTRANSFERASE INCREASED [None]
  - BLOOD ALKALINE PHOSPHATASE INCREASED [None]
  - BLOOD BILIRUBIN INCREASED [None]
  - GAMMA-GLUTAMYLTRANSFERASE INCREASED [None]
  - HEPATIC ENZYME INCREASED [None]
